FAERS Safety Report 6309200-7 (Version None)
Quarter: 2009Q3

REPORT INFORMATION
  Report Type: 
  Country: None (occurrence: None)
  Receive Date: 20090811
  Receipt Date: 20090803
  Transmission Date: 20100115
  Serious: Yes (Hospitalization)
  Sender: FDA-Public Use
  Company Number: 2009AL005130

PATIENT
  Age: 40 Year
  Sex: Male

DRUGS (2)
  1. VENLAFAXINE HCL [Suspect]
     Indication: DEPRESSION
     Dosage: 150 MG; PO
     Route: 048
     Dates: start: 20090509, end: 20090601
  2. SIMVASTATIN [Concomitant]

REACTIONS (1)
  - SUICIDE ATTEMPT [None]
